FAERS Safety Report 9156153 (Version 1)
Quarter: 2013Q1

REPORT INFORMATION
  Report Type: Spontaneous
  Country: IT (occurrence: IT)
  Receive Date: 20130311
  Receipt Date: 20130311
  Transmission Date: 20140127
  Serious: Yes (Hospitalization)
  Sender: FDA-Public Use
  Company Number: IT-BAYER-2013-029232

PATIENT
  Age: 41 Year
  Sex: Female

DRUGS (2)
  1. ASPIRINA [Suspect]
     Indication: INFLUENZA
     Dosage: 500 MG, ONCE
     Route: 048
     Dates: start: 20130206, end: 20130206
  2. AUGMENTIN [Suspect]
     Indication: INFLUENZA
     Dosage: 1 G, ONCE
     Route: 048
     Dates: start: 20130206, end: 20130206

REACTIONS (4)
  - Oedema [Recovered/Resolved]
  - Face oedema [Recovered/Resolved]
  - Pruritus [Recovered/Resolved]
  - Presyncope [Recovered/Resolved]
